FAERS Safety Report 14195606 (Version 1)
Quarter: 2017Q4

REPORT INFORMATION
  Report Type: Report from Study
  Country: US (occurrence: US)
  Receive Date: 20171116
  Receipt Date: 20171116
  Transmission Date: 20180321
  Serious: Yes (Other)
  Sender: FDA-Public Use
  Company Number: US-TESARO, INC.-US-2017TSO02658

PATIENT

DRUGS (3)
  1. ZEJULA [Suspect]
     Active Substance: NIRAPARIB
     Indication: OVARIAN CANCER
     Dosage: 200 MG, QD
     Route: 048
     Dates: start: 20170803
  2. ZEJULA [Suspect]
     Active Substance: NIRAPARIB
     Dosage: 200 MG, QD
     Route: 048
  3. ZEJULA [Suspect]
     Active Substance: NIRAPARIB
     Dosage: 200 MG, QD
     Route: 048

REACTIONS (16)
  - Insomnia [Not Recovered/Not Resolved]
  - Nausea [Not Recovered/Not Resolved]
  - Blood magnesium decreased [Not Recovered/Not Resolved]
  - Dry mouth [Not Recovered/Not Resolved]
  - Hypertension [Not Recovered/Not Resolved]
  - Secretion discharge [Not Recovered/Not Resolved]
  - Muscle spasms [Not Recovered/Not Resolved]
  - Rhinorrhoea [Not Recovered/Not Resolved]
  - Stomatitis [Not Recovered/Not Resolved]
  - Arthralgia [Not Recovered/Not Resolved]
  - Carbohydrate antigen 125 increased [Not Recovered/Not Resolved]
  - Balance disorder [Not Recovered/Not Resolved]
  - Urinary tract infection [Not Recovered/Not Resolved]
  - Anxiety [Not Recovered/Not Resolved]
  - Vomiting [Not Recovered/Not Resolved]
  - Diarrhoea [Not Recovered/Not Resolved]
